FAERS Safety Report 6897967-9 (Version None)
Quarter: 2010Q3

REPORT INFORMATION
  Report Type: 
  Country: None (occurrence: None)
  Receive Date: 20100802
  Receipt Date: 20070816
  Transmission Date: 20110219
  Serious: No
  Sender: FDA-Public Use
  Company Number: US-PFIZER INC-2007068249

PATIENT
  Sex: Male
  Weight: 81.8 kg

DRUGS (5)
  1. LYRICA [Suspect]
     Indication: TEMPOROMANDIBULAR JOINT SYNDROME
     Route: 048
     Dates: start: 20070815
  2. OXYCODONE [Concomitant]
  3. MONTELUKAST SODIUM [Concomitant]
  4. COMBIVENT [Concomitant]
  5. XANAX [Concomitant]

REACTIONS (1)
  - HEADACHE [None]
